FAERS Safety Report 6443301-8 (Version None)
Quarter: 2009Q4

REPORT INFORMATION
  Report Type: 
  Country: None (occurrence: None)
  Receive Date: 20091117
  Receipt Date: 20091111
  Transmission Date: 20100525
  Serious: No
  Sender: FDA-Public Use
  Company Number: US-B.I. PHARMACEUTICALS,INC./RIDGEFIELD-2009-BP-12406BP

PATIENT
  Sex: Male

DRUGS (6)
  1. SPIRIVA [Suspect]
     Indication: CHRONIC OBSTRUCTIVE PULMONARY DISEASE
     Dosage: 18 MCG
     Dates: start: 20090301
  2. SPIRIVA [Suspect]
     Indication: DYSPNOEA
  3. PLAVIX [Concomitant]
  4. LOVASTATIN [Concomitant]
  5. LUMIGAN [Concomitant]
  6. PRILOSEC [Concomitant]

REACTIONS (2)
  - DYSPNOEA [None]
  - RESPIRATION ABNORMAL [None]
